FAERS Safety Report 7199999-2 (Version None)
Quarter: 2010Q4

REPORT INFORMATION
  Report Type: 
  Country: None (occurrence: None)
  Receive Date: 20101228
  Receipt Date: 20101213
  Transmission Date: 20110411
  Serious: Yes (Congenital Anomaly)
  Sender: FDA-Public Use
  Company Number: GXKR2010GB14124

PATIENT

DRUGS (1)
  1. LABETALOL [Suspect]
     Dosage: MATERNAL DOSE 3 DF, QD
     Route: 064
     Dates: end: 20100522

REACTIONS (3)
  - CONGENITAL MEGACOLON [None]
  - DRUG EXPOSURE DURING PREGNANCY [None]
  - MATERNAL DRUGS AFFECTING FOETUS [None]
